FAERS Safety Report 18335288 (Version 3)
Quarter: 2020Q4

REPORT INFORMATION
  Report Type: Spontaneous
  Country: AT (occurrence: AT)
  Receive Date: 20201001
  Receipt Date: 20201017
  Transmission Date: 20210113
  Serious: Yes (Hospitalization)
  Sender: FDA-Public Use
  Company Number: NVSC2020AT262668

PATIENT
  Age: 47 Year
  Sex: Male

DRUGS (10)
  1. BISOPROLOL [Suspect]
     Active Substance: BISOPROLOL
     Indication: BLOOD PRESSURE INCREASED
  2. BISOPROLOL [Suspect]
     Active Substance: BISOPROLOL
     Indication: HYPERTENSION
     Dosage: UNK
     Route: 065
  3. CONCOR [Suspect]
     Active Substance: BISOPROLOL FUMARATE
     Indication: BLOOD PRESSURE INCREASED
     Dosage: 10 MG, QD,1/0/1/0
     Route: 065
     Dates: end: 20200619
  4. MIRTEL [MIRTAZAPINE] [Suspect]
     Active Substance: MIRTAZAPINE
     Indication: ANXIETY DISORDER
     Dosage: 30 MG, QD
     Route: 065
     Dates: end: 202006
  5. LYRICA [Suspect]
     Active Substance: PREGABALIN
     Indication: ANXIETY DISORDER
     Dosage: 75 MG, QD
     Route: 065
     Dates: end: 202008
  6. BISOPROLOL [Suspect]
     Active Substance: BISOPROLOL
     Indication: HEART RATE INCREASED
  7. LYRICA [Suspect]
     Active Substance: PREGABALIN
     Dosage: 225 MG, QD
     Route: 065
  8. EFECTIN [Suspect]
     Active Substance: VENLAFAXINE HYDROCHLORIDE
     Indication: ANXIETY DISORDER
     Dosage: 150 MG, QD (1/0/0/0)
     Route: 065
     Dates: end: 202008
  9. CONCOR [Suspect]
     Active Substance: BISOPROLOL FUMARATE
     Indication: HEART RATE INCREASED
  10. IVABRADINE [Suspect]
     Active Substance: IVABRADINE
     Indication: BLOOD PRESSURE INCREASED
     Dosage: 10 MG, QD (1/0/1/0)
     Route: 065
     Dates: start: 20200620, end: 20200731

REACTIONS (9)
  - Skin disorder [Unknown]
  - Skin exfoliation [Not Recovered/Not Resolved]
  - Drug eruption [Not Recovered/Not Resolved]
  - Weight increased [Unknown]
  - Psoriasis [Not Recovered/Not Resolved]
  - Rash [Not Recovered/Not Resolved]
  - Eczema [Unknown]
  - Blister [Not Recovered/Not Resolved]
  - Food craving [Unknown]

NARRATIVE: CASE EVENT DATE: 2020
